FAERS Safety Report 24049177 (Version 3)
Quarter: 2024Q3

REPORT INFORMATION
  Report Type: Spontaneous
  Country: US (occurrence: US)
  Receive Date: 20240704
  Receipt Date: 20240717
  Transmission Date: 20241016
  Serious: No
  Sender: CHATTEM
  Company Number: US-OPELLA-2024OHG022845

PATIENT
  Age: 7 Decade
  Sex: Female

DRUGS (1)
  1. ALLEGRA-D 24 HOUR [Suspect]
     Active Substance: FEXOFENADINE HYDROCHLORIDE\PSEUDOEPHEDRINE HYDROCHLORIDE
     Indication: Seasonal allergy
     Dosage: STRENGTH: 180 MG+240 MG

REACTIONS (5)
  - Alopecia [Unknown]
  - Hypersensitivity [Unknown]
  - Insomnia [Unknown]
  - Product colour issue [Unknown]
  - Drug ineffective [Unknown]
